FAERS Safety Report 18137660 (Version 3)
Quarter: 2021Q1

REPORT INFORMATION
  Report Type: Spontaneous
  Country: US (occurrence: US)
  Receive Date: 20200812
  Receipt Date: 20210121
  Transmission Date: 20210419
  Serious: Yes (Other)
  Sender: FDA-Public Use
  Company Number: US-TEVA-2020-US-1812271

PATIENT
  Age: 61 Year
  Sex: Male
  Weight: 90.7 kg

DRUGS (26)
  1. GLUCOPHAGE XR [Concomitant]
     Active Substance: METFORMIN HYDROCHLORIDE
     Dosage: ONE TAB ONCE DAILY
     Dates: start: 20161024, end: 20190731
  2. ZOLOFT [Concomitant]
     Active Substance: SERTRALINE HYDROCHLORIDE
     Dosage: TAKE 50MG BY MOUTH DAILY
     Route: 048
     Dates: end: 20170126
  3. VALSARTAN/HYDROCHLOROTHIAZIDE AUROBINDO PHARMA [Suspect]
     Active Substance: HYDROCHLOROTHIAZIDE\VALSARTAN
     Indication: HYPERTENSION
     Dosage: DOSAGE : 160?25 MG, VALSARTAN/HYDROCHLOROTHIAZIDE AUROBINDO PHARMA
     Route: 048
     Dates: start: 20140916, end: 20170129
  4. VALSARTAN ALEMBIC [Suspect]
     Active Substance: VALSARTAN
     Dosage: 160 MG
     Route: 048
  5. VALIUM [Concomitant]
     Active Substance: DIAZEPAM
     Indication: ANXIETY
     Dosage: 15 MILLIGRAM DAILY; TAKE 5MG BY MOUTH 3 TIMES A DAY
     Route: 048
     Dates: end: 20191113
  6. PERCOCET [Concomitant]
     Active Substance: ACETAMINOPHEN\OXYCODONE HYDROCHLORIDE
     Dosage: 10?325 MG PER TABLET, TAKE 1 TABLET BY MOUTH 3 TIMES A DAY
     Route: 048
     Dates: end: 20170222
  7. DIAZEPAM. [Concomitant]
     Active Substance: DIAZEPAM
     Indication: ANXIETY
     Dates: start: 201106, end: 201705
  8. MS CONTIN [Concomitant]
     Active Substance: MORPHINE SULFATE
     Dosage: 15 MILLIGRAM DAILY;
     Route: 048
     Dates: end: 20170206
  9. VALSARTAN/HYDROCHLOROTHIAZIDE SANDOZ [Suspect]
     Active Substance: HYDROCHLOROTHIAZIDE\VALSARTAN
     Dosage: DOSAGE : 160?12.5 MG
     Route: 048
  10. VALSARTAN/HYDROCHLOROTHIAZIDE ACTAVIS [Suspect]
     Active Substance: HYDROCHLOROTHIAZIDE\VALSARTAN
     Dosage: DOSAGE : 160?25 MG
     Route: 048
     Dates: start: 20131230, end: 20140915
  11. DIOVAN HCT [Suspect]
     Active Substance: HYDROCHLOROTHIAZIDE\VALSARTAN
     Dosage: 160/12.5 MG
     Route: 048
     Dates: start: 201001, end: 201111
  12. VALSARTAN NOVARTIS [Suspect]
     Active Substance: VALSARTAN
     Dosage: 160 MG
     Route: 048
  13. VALSARTAN JUBILANT CADISTA [Suspect]
     Active Substance: VALSARTAN
     Route: 065
  14. VALSARTAN/HYDROCHLOROTHIAZIDE SOLCO [Suspect]
     Active Substance: HYDROCHLOROTHIAZIDE\VALSARTAN
     Indication: HYPERTENSION
     Dosage: DOSAGE : 160?25 MG
     Route: 048
     Dates: start: 20160802, end: 20161031
  15. DIOVAN HCT [Suspect]
     Active Substance: HYDROCHLOROTHIAZIDE\VALSARTAN
     Indication: HYPERTENSION
     Dosage: 16?25 MG TABLET, TAKE ONE TABLET DAILY
     Route: 048
     Dates: start: 20161101, end: 20191007
  16. OXYCODONE AND ACETAMINOPHEN [Concomitant]
     Active Substance: ACETAMINOPHEN\OXYCODONE HYDROCHLORIDE
     Indication: PAIN
     Dosage: DOSAGE : 10/325MG
     Dates: start: 201001, end: 201705
  17. FLOMAX [Concomitant]
     Active Substance: TAMSULOSIN HYDROCHLORIDE
     Dosage: .4 MILLIGRAM DAILY; ONE CAPSULE DAILY
     Route: 048
     Dates: start: 20170209, end: 20170408
  18. VALSARTAN CAMBER [Suspect]
     Active Substance: VALSARTAN
     Dosage: 160 MG
     Route: 048
  19. VALSARTAN/HYDROCHLOROTHIAZIDE AUROBINDO PHARMA [Suspect]
     Active Substance: HYDROCHLOROTHIAZIDE\VALSARTAN
     Dosage: DOSAGE : 160?25 MG
     Route: 048
  20. VALSARTAN AUROBINDO [Suspect]
     Active Substance: VALSARTAN
     Dosage: 160 MG
     Route: 048
  21. ASPIRIN. [Concomitant]
     Active Substance: ASPIRIN
     Indication: PAIN
     Dosage: TAKE 325MG BY MOUTH EVERY SIX HOURS
     Route: 048
  22. FISH OIL [Concomitant]
     Active Substance: FISH OIL
     Dosage: 1000 MILLIGRAM DAILY;
     Route: 048
     Dates: end: 20191113
  23. VITAMIN B6 [Concomitant]
     Active Substance: PYRIDOXINE HYDROCHLORIDE
     Dosage: 100 MILLIGRAM DAILY;
     Route: 048
     Dates: end: 20191113
  24. VALSARTAN/HYDROCHLOROTHIAZIDE ACTAVIS [Suspect]
     Active Substance: HYDROCHLOROTHIAZIDE\VALSARTAN
     Indication: HYPERTENSION
     Dosage: DOSAGE : 160?12.5 MG
     Route: 048
     Dates: start: 20130712, end: 20131229
  25. LIPITOR [Concomitant]
     Active Substance: ATORVASTATIN CALCIUM
     Dosage: TAKE 20MG BY MOUTH DAILY
     Route: 048
     Dates: end: 20190809
  26. MS CONTIN [Concomitant]
     Active Substance: MORPHINE SULFATE
     Indication: PAIN
     Dates: start: 201106, end: 201705

REACTIONS (1)
  - Bladder cancer [Not Recovered/Not Resolved]
